FAERS Safety Report 21681459 (Version 1)
Quarter: 2022Q4

REPORT INFORMATION
  Report Type: Spontaneous
  Country: US (occurrence: US)
  Receive Date: 20221205
  Receipt Date: 20221205
  Transmission Date: 20230112
  Serious: No
  Sender: FDA-Public Use
  Company Number: US-AMGEN-USASP2022204901

PATIENT
  Age: 10 Year
  Sex: Female

DRUGS (5)
  1. RITUXIMAB [Suspect]
     Active Substance: RITUXIMAB
     Indication: Immune tolerance induction
     Dosage: UNK
     Route: 065
  2. BORTEZOMIB [Concomitant]
     Active Substance: BORTEZOMIB
     Route: 065
  3. Immunoglobulin [Concomitant]
     Route: 040
  4. ALEMTUZUMAB [Concomitant]
     Active Substance: ALEMTUZUMAB
  5. THIOTEPA [Concomitant]
     Active Substance: THIOTEPA

REACTIONS (2)
  - Drug effective for unapproved indication [Unknown]
  - Off label use [Unknown]
